FAERS Safety Report 8599189-2 (Version None)
Quarter: 2012Q3

REPORT INFORMATION
  Report Type: 
  Country: None (occurrence: None)
  Receive Date: 20120816
  Receipt Date: 20110819
  Transmission Date: 20120928
  Serious: No
  Sender: FDA-Public Use
  Company Number: US-AMGEN-USASP2011042621

PATIENT
  Age: 48 Year
  Sex: Female

DRUGS (3)
  1. NEUPOGEN [Suspect]
     Indication: CHEMOTHERAPY
  2. NEULASTA [Suspect]
     Indication: CHEMOTHERAPY
     Dosage: 6 MG, UNK
     Dates: start: 20110816
  3. NEUPOGEN [Suspect]
     Indication: PERIPHERAL BLOOD STEM CELL APHERESIS
     Dosage: UNK
     Dates: start: 20100701, end: 20100801

REACTIONS (3)
  - BONE PAIN [None]
  - WHITE BLOOD CELL COUNT DECREASED [None]
  - THERAPEUTIC RESPONSE DECREASED [None]
